FAERS Safety Report 6241009-5 (Version None)
Quarter: 2009Q2

REPORT INFORMATION
  Report Type: 
  Country: None (occurrence: None)
  Receive Date: 20090623
  Receipt Date: 20090616
  Transmission Date: 20091009
  Serious: Yes (Hospitalization)
  Sender: FDA-Public Use
  Company Number: B0579138A

PATIENT
  Sex: Male

DRUGS (2)
  1. AUGMENTIN '125' [Suspect]
     Route: 048
     Dates: start: 20080913, end: 20080915
  2. PROFENID [Suspect]
     Route: 048
     Dates: start: 20080913, end: 20080915

REACTIONS (1)
  - URTICARIA [None]
